FAERS Safety Report 6265449-3 (Version None)
Quarter: 2009Q3

REPORT INFORMATION
  Report Type: 
  Country: None (occurrence: None)
  Receive Date: 20090713
  Receipt Date: 20090706
  Transmission Date: 20100115
  Serious: Yes (Other)
  Sender: FDA-Public Use
  Company Number: US-PFIZER INC-2009217297

PATIENT
  Sex: Male
  Weight: 81.179 kg

DRUGS (1)
  1. SUTENT [Suspect]
     Indication: RENAL CELL CARCINOMA
     Dosage: 37.5 MG, DAILY FOR 4 WEEKS ON THEN 2 WEEKS OFF
     Route: 048
     Dates: start: 20081101, end: 20081114

REACTIONS (2)
  - PAIN [None]
  - PANIC ATTACK [None]
